FAERS Safety Report 5115572-1 (Version None)
Quarter: 2006Q3

REPORT INFORMATION
  Report Type: 
  Country: None (occurrence: None)
  Receive Date: 20060925
  Receipt Date: 20060920
  Transmission Date: 20061208
  Serious: Yes (Death)
  Sender: FDA-Public Use
  Company Number: TMDP-PR-0609S-0012

PATIENT
  Sex: Female

DRUGS (2)
  1. TECHNETIUM TC99M MEDRONATE INJECTION (TECHNETIUM TC99M) [Suspect]
     Indication: WOUND
     Dosage: SINGLE DOSE, I.V.
     Route: 042
  2. TECHNETIUM (TC99M) GENERATOR (MALLINCKRODT) (SODIUM PERTECHNETATE TC99 [Concomitant]

REACTIONS (1)
  - DYSPNOEA [None]
